FAERS Safety Report 10664716 (Version 1)
Quarter: 2014Q4

REPORT INFORMATION
  Report Type: Spontaneous
  Country: US (occurrence: None)
  Receive Date: 20141205
  Receipt Date: 20141205
  Transmission Date: 20150529
  Serious: Yes (Other)
  Sender: FDA-Public Use
  Company Number: 163-POMAL-14055045

PATIENT
  Age: 58 Year
  Sex: Male

DRUGS (18)
  1. POMALYST [Suspect]
     Active Substance: POMALIDOMIDE
     Indication: PLASMA CELL MYELOMA
     Dosage: 1 IN 1 D
     Route: 048
     Dates: start: 20140425
  2. NEURONTIN [Concomitant]
     Active Substance: GABAPENTIN
  3. FLOMAX [Concomitant]
     Active Substance: TAMSULOSIN HYDROCHLORIDE
  4. B12 (INJECTION) [Concomitant]
  5. PANTOPRAZOLE (PANTOPRAZOLE) [Concomitant]
     Active Substance: PANTOPRAZOLE SODIUM
  6. ACYCLOVIR (ACICLOVIR) [Concomitant]
  7. TESSALON (BENZONATATE) [Concomitant]
  8. FLOMAX [Concomitant]
     Active Substance: TAMSULOSIN HYDROCHLORIDE
  9. DULOXETINE (DULOXETINE) [Concomitant]
  10. CAL-GEST (500 MILLIGRAM, CHEWABLE TABLET) [Concomitant]
  11. BUFFERED ASPIRIN (ACETYLSALICYLIC ACID) [Concomitant]
  12. COENZYME 10 (UBIDECARENONE) [Concomitant]
  13. ATROPINE-DIPHENOXYLATE (ATROPINE SULFATE, DIPHENOXYLATE HYDROCHLORIDE) [Concomitant]
  14. COCCULUS INDICUS (PELLETS) [Concomitant]
  15. MACRODANTIN [Concomitant]
     Active Substance: NITROFURANTOIN
  16. COENZYME (UBIDECARENONE) [Concomitant]
  17. OXYCODONE (OXYCODONE) [Concomitant]
     Active Substance: OXYCODONE
  18. VITAMIN D3 [Concomitant]
     Active Substance: CHOLECALCIFEROL

REACTIONS (2)
  - Pancytopenia [None]
  - Diarrhoea [None]

NARRATIVE: CASE EVENT DATE: 2014
